FAERS Safety Report 10158225 (Version 1)
Quarter: 2014Q2

REPORT INFORMATION
  Report Type: Report from Study
  Country: FR (occurrence: FR)
  Receive Date: 20140507
  Receipt Date: 20140507
  Transmission Date: 20141212
  Serious: Yes (Hospitalization, Other)
  Sender: FDA-Public Use
  Company Number: PHHY2014FR054281

PATIENT
  Age: 37 Year
  Sex: Male

DRUGS (20)
  1. NEORAL [Suspect]
     Dosage: UNK UKN, UNK
     Route: 048
  2. NEORAL [Suspect]
     Dosage: OVER DOSE
     Route: 048
  3. NEORAL [Suspect]
     Dosage: 60 MG, BID
     Route: 048
  4. NEORAL [Suspect]
     Dosage: 75 UNK, UNK
     Route: 048
     Dates: start: 20121224
  5. TRANXENE [Suspect]
     Dosage: UNK UKN, UNK
  6. ATARAX                                  /CAN/ [Suspect]
     Dosage: UNK UKN, UNK
  7. CORTANCYL [Concomitant]
     Dosage: UNK UKN, UNK
     Dates: start: 20121213, end: 20121219
  8. NOVOMIX [Concomitant]
     Dosage: 100 IU/ML, UNK
  9. ZOVIRAX [Concomitant]
     Dosage: UNK UKN, UNK
  10. ZELITREX [Concomitant]
  11. NOXAFIL [Concomitant]
     Dosage: UNK UKN, UNK
  12. BACTRIM FORTE [Concomitant]
     Dosage: UNK UKN, UNK
  13. OMEPRAZOLE [Concomitant]
     Dosage: UNK UKN, UNK
  14. ROVAMYCINE [Concomitant]
     Dosage: UNK UKN, UNK
  15. LEDERFOLINE [Concomitant]
     Dosage: UNK UKN, UNK
  16. IMOVANE [Concomitant]
     Dosage: UNK UKN, UNK
  17. LOXEN [Concomitant]
     Dosage: UNK UKN, UNK
  18. MOVICOL [Concomitant]
     Dosage: UNK UKN, UNK
  19. DIFFU-K [Concomitant]
     Dosage: UNK UKN, UNK
  20. MAGNE B6 [Concomitant]

REACTIONS (7)
  - Disorientation [Recovered/Resolved]
  - Anterograde amnesia [Recovered/Resolved]
  - Renal failure acute [Unknown]
  - Platelet count decreased [Unknown]
  - Overdose [Unknown]
  - White blood cell count decreased [Unknown]
  - Haemoglobin decreased [Unknown]
